FAERS Safety Report 7685632-X (Version None)
Quarter: 2011Q3

REPORT INFORMATION
  Report Type: 
  Country: None (occurrence: None)
  Receive Date: 20110816
  Receipt Date: 20110808
  Transmission Date: 20111222
  Serious: Yes (Hospitalization)
  Sender: FDA-Public Use
  Company Number: GB-JNJFOC-20090902153

PATIENT
  Sex: Male

DRUGS (6)
  1. ACETAMINOPHEN [Concomitant]
     Dosage: PRN
     Route: 048
  2. PROSTEP [Concomitant]
     Route: 058
  3. SLOW-K [Concomitant]
     Route: 048
     Dates: start: 20070111
  4. ABIRATERONE ACETATE [Suspect]
     Route: 048
  5. DOMPERIDONE [Concomitant]
     Dosage: PRN
     Route: 048
  6. ABIRATERONE ACETATE [Suspect]
     Indication: PROSTATE CANCER
     Route: 048
     Dates: start: 20071210

REACTIONS (1)
  - DYSPNOEA [None]
